FAERS Safety Report 6858518-8 (Version None)
Quarter: 2010Q3

REPORT INFORMATION
  Report Type: 
  Country: None (occurrence: None)
  Receive Date: 20100719
  Receipt Date: 20080315
  Transmission Date: 20110219
  Serious: No
  Sender: FDA-Public Use
  Company Number: US-PFIZER INC-2008014008

PATIENT
  Sex: Male
  Weight: 64.4 kg

DRUGS (11)
  1. CHANTIX [Suspect]
     Indication: SMOKING CESSATION THERAPY
     Route: 048
     Dates: start: 20080101, end: 20080201
  2. OTHER DERMATOLOGICAL PREPARATIONS [Suspect]
     Route: 061
     Dates: end: 20080201
  3. DOLOBID [Concomitant]
  4. QUESTRAN [Concomitant]
  5. FLEXERIL [Concomitant]
  6. PERCOCET [Concomitant]
  7. ACETYLSALICYLIC ACID [Concomitant]
  8. MINOXIDIL [Concomitant]
  9. KLONOPIN [Concomitant]
  10. ALBUTEROL [Concomitant]
  11. LORTAB [Concomitant]

REACTIONS (1)
  - RASH PAPULAR [None]
